FAERS Safety Report 10470801 (Version 2)
Quarter: 2014Q3

REPORT INFORMATION
  Report Type: Spontaneous
  Country: DE (occurrence: DE)
  Receive Date: 20140923
  Receipt Date: 20140925
  Transmission Date: 20150326
  Serious: Yes (Life-Threatening, Hospitalization, Disabling)
  Sender: FDA-Public Use
  Company Number: DE-VIIV HEALTHCARE LIMITED-D0085528A

PATIENT
  Age: 52 Year
  Sex: Male
  Weight: 95 kg

DRUGS (6)
  1. SUSTIVA [Suspect]
     Active Substance: EFAVIRENZ
     Indication: HIV INFECTION
     Dosage: 600MG PER DAY
     Route: 048
     Dates: start: 1999
  2. ENALAPRIL [Concomitant]
     Active Substance: ENALAPRIL
     Indication: HYPERTENSION
     Dosage: 10MG PER DAY
     Route: 048
     Dates: start: 201305
  3. AMLODIPIN [Concomitant]
     Active Substance: AMLODIPINE BESYLATE
     Indication: HYPERTENSION
     Dosage: 5MG PER DAY
     Route: 048
     Dates: start: 201311
  4. BISOPROLOL [Concomitant]
     Active Substance: BISOPROLOL
     Indication: HYPERTENSION
     Dosage: 5MG PER DAY
     Route: 048
     Dates: start: 201305
  5. PRAVASTATIN [Concomitant]
     Active Substance: PRAVASTATIN\PRAVASTATIN SODIUM
     Indication: HYPERLIPIDAEMIA
     Dosage: 40MG PER DAY
     Route: 048
     Dates: start: 1999
  6. COMBIVIR [Suspect]
     Active Substance: LAMIVUDINE\ZIDOVUDINE
     Indication: HIV INFECTION
     Dosage: 450MG PER DAY
     Route: 048
     Dates: start: 1999, end: 2014

REACTIONS (8)
  - Incorrect dosage administered [Unknown]
  - Enterostomy [Recovered/Resolved with Sequelae]
  - Colon cancer [Recovered/Resolved]
  - Adenocarcinoma of colon [Recovering/Resolving]
  - Intestinal ischaemia [Recovered/Resolved]
  - Colon cancer [Recovered/Resolved with Sequelae]
  - Colectomy [Recovered/Resolved with Sequelae]
  - Gastroenteritis shigella [Recovered/Resolved]

NARRATIVE: CASE EVENT DATE: 20140528
